FAERS Safety Report 20933572 (Version 2)
Quarter: 2022Q2

REPORT INFORMATION
  Report Type: Report from Study
  Country: US (occurrence: US)
  Receive Date: 20220608
  Receipt Date: 20220615
  Transmission Date: 20220720
  Serious: No
  Sender: FDA-Public Use
  Company Number: US-MYLANLABS-2022M1043191

PATIENT
  Sex: Female
  Weight: 61.23 kg

DRUGS (1)
  1. GLATIRAMER ACETATE [Suspect]
     Active Substance: GLATIRAMER ACETATE
     Indication: Multiple sclerosis
     Dosage: 40 MILLIGRAM, 3XW

REACTIONS (8)
  - Dizziness [Unknown]
  - Device mechanical issue [Unknown]
  - Needle issue [Unknown]
  - Flushing [Unknown]
  - Dysgeusia [Unknown]
  - Abdominal discomfort [Unknown]
  - Illness [Unknown]
  - Bowel movement irregularity [Unknown]
